FAERS Safety Report 7248710-5 (Version None)
Quarter: 2011Q1

REPORT INFORMATION
  Report Type: 
  Country: None (occurrence: None)
  Receive Date: 20110121
  Receipt Date: 20110121
  Transmission Date: 20110831
  Serious: No
  Sender: FDA-Public Use
  Company Number: None

PATIENT
  Age: 35 Year
  Sex: Female

DRUGS (2)
  1. DAPSONE [Suspect]
     Dates: start: 20090615, end: 20090704
  2. CYCLOPHOSPHAMIDE [Suspect]
     Dates: start: 20090522, end: 20090629

REACTIONS (5)
  - ASPARTATE AMINOTRANSFERASE INCREASED [None]
  - LIVER INJURY [None]
  - ALANINE AMINOTRANSFERASE INCREASED [None]
  - NAUSEA [None]
  - BLOOD ALKALINE PHOSPHATASE INCREASED [None]
